FAERS Safety Report 6027284-0 (Version None)
Quarter: 2008Q4

REPORT INFORMATION
  Report Type: 
  Country: None (occurrence: None)
  Receive Date: 20081231
  Receipt Date: 20081231
  Transmission Date: 20090506
  Serious: Yes (Life-Threatening, Hospitalization)
  Sender: FDA-Public Use
  Company Number: None

PATIENT
  Sex: Female
  Weight: 74.8435 kg

DRUGS (1)
  1. MAXALT [Suspect]
     Indication: MIGRAINE
     Dosage: 1 TABLET AT ONSET OF MIGRANE PO
     Route: 048
     Dates: start: 20080709, end: 20081218

REACTIONS (1)
  - MYOCARDIAL INFARCTION [None]
